FAERS Safety Report 8921130 (Version 1)
Quarter: 2012Q4

REPORT INFORMATION
  Report Type: Report from Study
  Country: US (occurrence: US)
  Receive Date: 20121122
  Receipt Date: 20121122
  Transmission Date: 20130627
  Serious: Yes (Hospitalization)
  Sender: FDA-Public Use
  Company Number: US-MERCK-1211USA007155

PATIENT
  Age: 66 Year
  Sex: Female

DRUGS (29)
  1. VORINOSTAT [Suspect]
     Indication: ACUTE MYELOID LEUKAEMIA
     Dosage: 400 mg, qd
     Route: 048
     Dates: start: 20120723, end: 20120731
  2. AZACITIDINE [Suspect]
     Indication: ACUTE MYELOID LEUKAEMIA
     Dosage: 125 mg, qd
     Route: 042
     Dates: start: 20120726, end: 20120729
  3. MYLOTARG [Suspect]
     Indication: ACUTE MYELOID LEUKAEMIA
     Dosage: 5 mg, Once
     Route: 042
     Dates: start: 20120726, end: 20120726
  4. MYLOTARG [Suspect]
     Dosage: 5 mg, Once
     Route: 042
     Dates: start: 20120730, end: 20120730
  5. FUROSEMIDE [Concomitant]
  6. OXYGEN [Concomitant]
     Indication: DYSPNOEA
     Route: 045
  7. AMBISOME [Concomitant]
     Dosage: 300 mg, on monday, wednesday and friday
     Route: 042
  8. ACETAMINOPHEN [Concomitant]
     Dosage: UNK mg, prn
     Route: 048
  9. AMIODARONE [Concomitant]
     Dosage: 200 mg, qd
  10. FAMOTIDINE [Concomitant]
     Dosage: 20 mg, qd
  11. BLOOD CELLS, RED [Concomitant]
     Route: 042
  12. MORPHINE [Concomitant]
     Dosage: 3 mg, prn
     Route: 048
  13. AMPHOTERICIN B [Concomitant]
     Indication: CARDIOMYOPATHY
  14. CASPOFUNGIN ACETATE [Concomitant]
     Indication: CARDIOMYOPATHY
     Dosage: 50 mg, qd
     Route: 048
  15. POSACONAZOLE [Concomitant]
     Dosage: 5 ml, qd with meals and bedtime
     Route: 048
  16. AZELASTINE HYDROCHLORIDE [Concomitant]
     Dosage: 274 Microgram, bid
     Route: 045
  17. CETIRIZINE HYDROCHLORIDE [Concomitant]
     Dosage: 10 mg, qd
     Route: 048
  18. CLOTRIMAZOLE [Concomitant]
     Dosage: 10 mg, 5 in one day
     Route: 048
  19. HEPARIN [Concomitant]
     Dosage: 3 ml, bedtime, prn
     Route: 042
  20. SYNTHROID [Concomitant]
     Dosage: 112 Microgram, qd
     Route: 048
  21. MOMETASONE FUROATE [Concomitant]
     Dosage: 50 Microgram, qd, 2 spary
     Route: 045
  22. HYDROXYZINE [Concomitant]
     Dosage: 10 mg, q6h
     Route: 048
  23. CHOLECALCIFEROL [Concomitant]
     Dosage: 6000 DF, qd
     Route: 048
  24. CALCIUM CITRATE [Concomitant]
     Dosage: 600 mg, qd
     Route: 048
  25. LORAZEPAM [Concomitant]
     Dosage: 6 mg, q4h
     Route: 048
  26. TYLENOL [Concomitant]
     Dosage: 650 mg, UNK
  27. TRAZODONE HYDROCHLORIDE [Concomitant]
     Dosage: 100 mg, qd
  28. VITAMINS (UNSPECIFIED) [Concomitant]
  29. LISINOPRIL [Concomitant]
     Indication: CARDIOMYOPATHY
     Dosage: 2.5 mg, qd
     Route: 048

REACTIONS (1)
  - Cardiac failure congestive [Recovered/Resolved]
